FAERS Safety Report 8572346-7 (Version None)
Quarter: 2012Q3

REPORT INFORMATION
  Report Type: 
  Country: None (occurrence: None)
  Receive Date: 20120806
  Receipt Date: 20120718
  Transmission Date: 20120928
  Serious: No
  Sender: FDA-Public Use
  Company Number: US-009507513-1207USA007888

PATIENT

DRUGS (6)
  1. PEG-INTRON [Suspect]
     Dosage: UNK
  2. REBETOL [Suspect]
  3. ALBUTEROL [Concomitant]
  4. VICTRELIS [Suspect]
     Dosage: 800 MG, Q8H WITH MEALS
     Route: 048
  5. SINGULAIR [Concomitant]
  6. MELOXICAM [Concomitant]

REACTIONS (1)
  - IRRITABILITY [None]
